FAERS Safety Report 7757611-5 (Version None)
Quarter: 2011Q3

REPORT INFORMATION
  Report Type: 
  Country: None (occurrence: None)
  Receive Date: 20110916
  Receipt Date: 20110914
  Transmission Date: 20111222
  Serious: Yes (Other)
  Sender: FDA-Public Use
  Company Number: BR-PFIZER INC-2010137858

PATIENT
  Age: 25 Year
  Sex: Male
  Weight: 80 kg

DRUGS (4)
  1. VARENICLINE TARTRATE [Suspect]
     Indication: SMOKING CESSATION THERAPY
     Dosage: 0.5 MG, 2X/DAY, EVERY 12 HOURS
     Route: 048
  2. VARENICLINE TARTRATE [Suspect]
     Dosage: UNK
     Dates: start: 20110101, end: 20110101
  3. VARENICLINE TARTRATE [Suspect]
     Indication: TOBACCO USER
     Dosage: 0.5 MG, 1X/DAY
     Route: 048
     Dates: start: 20101025
  4. VARENICLINE TARTRATE [Suspect]
     Dosage: 1 MG, 2X/DAY
     Route: 048

REACTIONS (3)
  - APATHY [None]
  - AFFECTIVE DISORDER [None]
  - AGITATION [None]
